FAERS Safety Report 19846679 (Version 1)
Quarter: 2021Q3

REPORT INFORMATION
  Report Type: Spontaneous
  Country: DE (occurrence: DE)
  Receive Date: 20210917
  Receipt Date: 20210917
  Transmission Date: 20211014
  Serious: Yes (Hospitalization)
  Sender: FDA-Public Use
  Company Number: DE-TEVA-2021-DE-1952623

PATIENT
  Age: 63 Year
  Sex: Male
  Weight: 61 kg

DRUGS (7)
  1. PANTOPRAZOL [Suspect]
     Active Substance: PANTOPRAZOLE SODIUM
     Dosage: 40 MILLIGRAM DAILY; 1?0?0?0
  2. FUROSEMID [Suspect]
     Active Substance: FUROSEMIDE
     Dosage: 2 DOSAGE FORMS DAILY; 40 MG, 2?0?0?0
  3. ORNITHINASPARTAT [Concomitant]
     Dosage: 6 GRAM DAILY; 1?0?1?0
  4. KALIUM [Concomitant]
     Active Substance: POTASSIUM CHLORIDE
     Dosage: 400 MILLIGRAM DAILY; 1?0?1?0
  5. LACTULOSE. [Concomitant]
     Active Substance: LACTULOSE
     Dosage: 20 DOSAGE FORMS DAILY; 3.335 G, 20?0?0?0
  6. SPIRONOLACTON [Suspect]
     Active Substance: SPIRONOLACTONE
     Dosage: 2 DOSAGE FORMS DAILY; 50 MG, 2?0?0?0
  7. SITAGLIPTIN [Concomitant]
     Active Substance: SITAGLIPTIN
     Dosage: 100 MILLIGRAM DAILY; 1?0?0?0

REACTIONS (9)
  - Confusional state [Unknown]
  - Hyponatraemia [Unknown]
  - General physical health deterioration [Unknown]
  - Oedema peripheral [Unknown]
  - Abdominal pain [Unknown]
  - Condition aggravated [Unknown]
  - Depressed mood [Unknown]
  - Anaemia [Unknown]
  - Disorientation [Unknown]
